FAERS Safety Report 25940035 (Version 1)
Quarter: 2025Q4

REPORT INFORMATION
  Report Type: Spontaneous
  Country: CA (occurrence: CA)
  Receive Date: 20251020
  Receipt Date: 20251020
  Transmission Date: 20260117
  Serious: Yes (Other)
  Sender: CELLTRION
  Company Number: CA-CELLTRION INC.-2025CA036873

PATIENT

DRUGS (57)
  1. INFLIXIMAB [Suspect]
     Active Substance: INFLIXIMAB
     Indication: Colitis ulcerative
     Dosage: 600.0 MILLIGRAM
     Route: 042
  2. INFLIXIMAB [Suspect]
     Active Substance: INFLIXIMAB
     Dosage: 600.0 MILLIGRAM
     Route: 042
  3. INFLIXIMAB [Suspect]
     Active Substance: INFLIXIMAB
     Dosage: 600.0 MILLIGRAM
     Route: 042
  4. INFLIXIMAB [Suspect]
     Active Substance: INFLIXIMAB
     Dosage: 600.0 MILLIGRAM
     Route: 042
  5. INFLIXIMAB [Suspect]
     Active Substance: INFLIXIMAB
     Dosage: 600.0 MILLIGRAM
     Route: 042
  6. INFLIXIMAB [Suspect]
     Active Substance: INFLIXIMAB
     Dosage: 600.0 MILLIGRAM
     Route: 042
  7. INFLIXIMAB [Suspect]
     Active Substance: INFLIXIMAB
     Dosage: 600.0 MILLIGRAM
     Route: 042
  8. INFLIXIMAB [Suspect]
     Active Substance: INFLIXIMAB
     Dosage: 600.0 MILLIGRAM
     Route: 042
  9. INFLIXIMAB [Suspect]
     Active Substance: INFLIXIMAB
     Dosage: 600.0 MILLIGRAM
     Route: 042
  10. INFLIXIMAB [Suspect]
     Active Substance: INFLIXIMAB
     Dosage: 600.0 MILLIGRAM
     Route: 042
  11. INFLIXIMAB [Suspect]
     Active Substance: INFLIXIMAB
     Dosage: 600.0 MILLIGRAM
     Route: 042
  12. INFLIXIMAB [Suspect]
     Active Substance: INFLIXIMAB
     Dosage: 600.0 MILLIGRAM
     Route: 042
  13. INFLIXIMAB [Suspect]
     Active Substance: INFLIXIMAB
     Dosage: 750.0 MILLIGRAM
     Route: 042
  14. INFLIXIMAB [Suspect]
     Active Substance: INFLIXIMAB
     Dosage: 750.0 MILLIGRAM
     Route: 042
  15. INFLIXIMAB [Suspect]
     Active Substance: INFLIXIMAB
     Dosage: 750.0 MILLIGRAM
     Route: 042
  16. INFLIXIMAB [Suspect]
     Active Substance: INFLIXIMAB
     Dosage: 750.0 MILLIGRAM
     Route: 042
  17. INFLIXIMAB [Suspect]
     Active Substance: INFLIXIMAB
     Dosage: 750.0 MILLIGRAM
     Route: 042
  18. INFLIXIMAB [Suspect]
     Active Substance: INFLIXIMAB
     Dosage: 750.0 MILLIGRAM
     Route: 042
  19. INFLIXIMAB [Suspect]
     Active Substance: INFLIXIMAB
     Dosage: 750.0 MILLIGRAM
     Route: 042
  20. INFLIXIMAB [Suspect]
     Active Substance: INFLIXIMAB
     Dosage: 750.0 MILLIGRAM
     Route: 042
  21. INFLIXIMAB [Suspect]
     Active Substance: INFLIXIMAB
     Dosage: 750.0 MILLIGRAM
     Route: 042
  22. INFLIXIMAB [Suspect]
     Active Substance: INFLIXIMAB
     Dosage: 750.0 MILLIGRAM
     Route: 042
  23. INFLIXIMAB [Suspect]
     Active Substance: INFLIXIMAB
     Dosage: 800.0 MILLIGRAM
     Route: 042
  24. INFLIXIMAB [Suspect]
     Active Substance: INFLIXIMAB
     Dosage: 750.0 MILLIGRAM
     Route: 042
  25. INFLIXIMAB [Suspect]
     Active Substance: INFLIXIMAB
     Dosage: 750.0 MILLIGRAM
     Route: 042
  26. INFLIXIMAB [Suspect]
     Active Substance: INFLIXIMAB
     Dosage: 750.0 MILLIGRAM
     Route: 042
  27. INFLIXIMAB [Suspect]
     Active Substance: INFLIXIMAB
     Dosage: 800.0 MILLIGRAM
     Route: 042
  28. INFLIXIMAB [Suspect]
     Active Substance: INFLIXIMAB
     Dosage: 800.0 MILLIGRAM
     Route: 042
  29. INFLIXIMAB [Suspect]
     Active Substance: INFLIXIMAB
     Dosage: 800.0 MILLIGRAM
     Route: 042
  30. INFLIXIMAB [Suspect]
     Active Substance: INFLIXIMAB
     Dosage: 800.0 MILLIGRAM
     Route: 042
  31. INFLIXIMAB [Suspect]
     Active Substance: INFLIXIMAB
     Dosage: 800.0 MILLIGRAM
     Route: 042
  32. INFLIXIMAB [Suspect]
     Active Substance: INFLIXIMAB
     Dosage: 800.0 MILLIGRAM
     Route: 042
  33. INFLIXIMAB [Suspect]
     Active Substance: INFLIXIMAB
     Dosage: 800.0 MILLIGRAM
     Route: 042
  34. INFLIXIMAB [Suspect]
     Active Substance: INFLIXIMAB
     Dosage: 800.0 MILLIGRAM
     Route: 042
  35. INFLIXIMAB [Suspect]
     Active Substance: INFLIXIMAB
     Dosage: 800.0 MILLIGRAM
     Route: 042
  36. INFLIXIMAB [Suspect]
     Active Substance: INFLIXIMAB
     Dosage: 800.0 MILLIGRAM
     Route: 042
  37. INFLIXIMAB [Suspect]
     Active Substance: INFLIXIMAB
     Dosage: 800.0 MILLIGRAM
     Route: 042
  38. INFLIXIMAB [Suspect]
     Active Substance: INFLIXIMAB
     Dosage: 800.0 MILLIGRAM
     Route: 042
  39. INFLIXIMAB [Suspect]
     Active Substance: INFLIXIMAB
     Dosage: 800.0 MILLIGRAM
     Route: 042
  40. INFLIXIMAB [Suspect]
     Active Substance: INFLIXIMAB
     Dosage: 800.0 MILLIGRAM
     Route: 042
  41. INFLIXIMAB [Suspect]
     Active Substance: INFLIXIMAB
     Dosage: 800.0 MILLIGRAM
     Route: 042
  42. INFLIXIMAB [Suspect]
     Active Substance: INFLIXIMAB
     Dosage: 800.0 MILLIGRAM
     Route: 042
  43. INFLIXIMAB [Suspect]
     Active Substance: INFLIXIMAB
     Dosage: 600.0 MILLIGRAM
     Route: 042
  44. INFLIXIMAB [Suspect]
     Active Substance: INFLIXIMAB
     Dosage: 600.0 MILLIGRAM
     Route: 042
  45. INFLIXIMAB [Suspect]
     Active Substance: INFLIXIMAB
     Dosage: 600.0 MILLIGRAM
     Route: 042
  46. INFLIXIMAB [Suspect]
     Active Substance: INFLIXIMAB
     Dosage: 600.0 MILLIGRAM
     Route: 042
  47. INFLIXIMAB [Suspect]
     Active Substance: INFLIXIMAB
     Dosage: 600.0 MILLIGRAM
     Route: 042
  48. INFLIXIMAB [Suspect]
     Active Substance: INFLIXIMAB
     Dosage: 600.0 MILLIGRAM
     Route: 042
  49. INFLIXIMAB [Suspect]
     Active Substance: INFLIXIMAB
     Dosage: 600.0 MILLIGRAM
     Route: 042
  50. INFLIXIMAB [Suspect]
     Active Substance: INFLIXIMAB
     Dosage: 600.0 MILLIGRAM
     Route: 042
  51. ACETAMINOPHEN [Concomitant]
     Active Substance: ACETAMINOPHEN
     Indication: Premedication
     Dosage: 650.0 MILLIGRAM
  52. ACETAMINOPHEN [Concomitant]
     Active Substance: ACETAMINOPHEN
     Indication: Premedication
     Dosage: 650.0 MILLIGRAM
  53. ASACOL [Concomitant]
     Active Substance: MESALAMINE
     Dosage: 1.0 DOSAGE FORM
     Route: 065
  54. CETIRIZINE HYDROCHLORIDE [Concomitant]
     Active Substance: CETIRIZINE HYDROCHLORIDE
     Dosage: 10.0 MILLIGRAM
  55. ESCITALOPRAM [Concomitant]
     Active Substance: ESCITALOPRAM OXALATE
  56. PREDNISONE [Concomitant]
     Active Substance: PREDNISONE
     Dosage: 1.0 DOSAGE FORM
     Route: 065
  57. VYVANSE [Concomitant]
     Active Substance: LISDEXAMFETAMINE DIMESYLATE

REACTIONS (27)
  - Blood pressure systolic increased [Not Recovered/Not Resolved]
  - Condition aggravated [Not Recovered/Not Resolved]
  - Cough [Not Recovered/Not Resolved]
  - Decreased appetite [Not Recovered/Not Resolved]
  - Drug level below therapeutic [Not Recovered/Not Resolved]
  - Food poisoning [Not Recovered/Not Resolved]
  - Malaise [Not Recovered/Not Resolved]
  - Sinus disorder [Not Recovered/Not Resolved]
  - Weight decreased [Not Recovered/Not Resolved]
  - Sneezing [Not Recovered/Not Resolved]
  - Weight fluctuation [Not Recovered/Not Resolved]
  - Weight increased [Not Recovered/Not Resolved]
  - Rectal haemorrhage [Not Recovered/Not Resolved]
  - Bronchitis [Not Recovered/Not Resolved]
  - COVID-19 [Not Recovered/Not Resolved]
  - Dizziness [Not Recovered/Not Resolved]
  - Fatigue [Not Recovered/Not Resolved]
  - Insomnia [Not Recovered/Not Resolved]
  - Illness [Not Recovered/Not Resolved]
  - Nasopharyngitis [Not Recovered/Not Resolved]
  - Nausea [Not Recovered/Not Resolved]
  - Pyrexia [Not Recovered/Not Resolved]
  - Intentional product use issue [Not Recovered/Not Resolved]
  - Inappropriate schedule of product administration [Not Recovered/Not Resolved]
  - Therapeutic response shortened [Not Recovered/Not Resolved]
  - Off label use [Not Recovered/Not Resolved]
  - Overdose [Unknown]
